FAERS Safety Report 7055353-5 (Version None)
Quarter: 2010Q4

REPORT INFORMATION
  Report Type: 
  Country: None (occurrence: None)
  Receive Date: 20101021
  Receipt Date: 20101002
  Transmission Date: 20110411
  Serious: No
  Sender: FDA-Public Use
  Company Number: US-KINGPHARMUSA00001-K201001230

PATIENT
  Sex: Male
  Weight: 112.2 kg

DRUGS (7)
  1. EMBEDA [Suspect]
     Indication: BACK PAIN
     Dosage: 100 MG, BID
     Route: 048
     Dates: start: 20100928, end: 20100101
  2. EMBEDA [Suspect]
     Dosage: 100 MG, BID
     Route: 048
     Dates: start: 20100101
  3. CLONAZEPAM [Concomitant]
     Indication: BIPOLAR I DISORDER
  4. AMITRIPTYLINE HCL [Concomitant]
  5. OMEPRAZOLE [Concomitant]
  6. LOVAZA [Concomitant]
  7. METOPROLOL TARTRATE [Concomitant]
     Indication: HYPERTENSION

REACTIONS (11)
  - ABDOMINAL PAIN [None]
  - COLD SWEAT [None]
  - DIARRHOEA [None]
  - FEELING ABNORMAL [None]
  - FEELING COLD [None]
  - FOOD POISONING [None]
  - INSOMNIA [None]
  - MALAISE [None]
  - NAUSEA [None]
  - PAIN [None]
  - VOMITING [None]
